FAERS Safety Report 6880691-6 (Version None)
Quarter: 2010Q3

REPORT INFORMATION
  Report Type: 
  Country: None (occurrence: None)
  Receive Date: 20100728
  Receipt Date: 20100712
  Transmission Date: 20110219
  Serious: Yes (Hospitalization, Other)
  Sender: FDA-Public Use
  Company Number: US-BAYER-201010414NA

PATIENT
  Age: 39 Year
  Sex: Female
  Weight: 64 kg

DRUGS (4)
  1. YAZ [Suspect]
     Indication: PRODUCT USED FOR UNKNOWN INDICATION
     Dates: start: 20050601, end: 20070701
  2. YASMIN [Suspect]
     Indication: PRODUCT USED FOR UNKNOWN INDICATION
     Dates: start: 20050601, end: 20070701
  3. ADVAIR DISKUS 100/50 [Concomitant]
     Dates: start: 20040101
  4. ALBUTEROL [Concomitant]
     Dates: start: 20040101

REACTIONS (5)
  - DEEP VEIN THROMBOSIS [None]
  - DYSPNOEA [None]
  - JOINT SWELLING [None]
  - PAIN IN EXTREMITY [None]
  - PULMONARY EMBOLISM [None]
